FAERS Safety Report 8095325-5 (Version None)
Quarter: 2012Q1

REPORT INFORMATION
  Report Type: 
  Country: None (occurrence: None)
  Receive Date: 20120129
  Receipt Date: 20111228
  Transmission Date: 20120608
  Serious: Yes (Hospitalization)
  Sender: FDA-Public Use
  Company Number: US-ABBOTT-12P-163-0888343-00

PATIENT
  Age: 63 Year
  Sex: Male

DRUGS (7)
  1. VORICONAZOLE [Concomitant]
     Indication: RESPIRATORY TRACT INFECTION FUNGAL
     Dosage: 200 MG DAILY
  2. LOMOTIL [Concomitant]
     Indication: DIARRHOEA
     Dosage: 2 TABLET QID PRN
  3. PROMETHAZINE [Concomitant]
     Indication: CROHN'S DISEASE
  4. HUMIRA [Suspect]
     Indication: CROHN'S DISEASE
     Dates: start: 20110929
  5. TRAMADOL HCL [Concomitant]
     Indication: PAIN
  6. MIRTAZAPINE [Concomitant]
     Indication: DECREASED APPETITE
     Dosage: 30 MG
  7. ONDANSETRON [Concomitant]
     Indication: NAUSEA

REACTIONS (1)
  - DEHYDRATION [None]
